FAERS Safety Report 17544605 (Version 3)
Quarter: 2020Q3

REPORT INFORMATION
  Report Type: Spontaneous
  Country: US (occurrence: US)
  Receive Date: 20200316
  Receipt Date: 20200924
  Transmission Date: 20201102
  Serious: Yes (Other)
  Sender: FDA-Public Use
  Company Number: US-PFIZER INC-2020111128

PATIENT
  Age: 59 Year
  Sex: Female
  Weight: 89 kg

DRUGS (4)
  1. LYRICA [Suspect]
     Active Substance: PREGABALIN
     Indication: SEIZURE
     Dosage: UNK
  2. METFORMIN [Concomitant]
     Active Substance: METFORMIN HYDROCHLORIDE
     Indication: DIABETES MELLITUS
     Dosage: 1000 MG, 2X/DAY (1 BY MOUTH TWICE A DAY AT MEALTIME IN MORNING AND EVENING)
     Route: 048
  3. KEPPRA XR [Concomitant]
     Active Substance: LEVETIRACETAM
     Indication: SEIZURE
     Dosage: 500 MG, 1X/DAY (500MG TABLETS, 1 TABLET AT NIGHT BY MOUTH)
     Route: 048
  4. LYRICA [Suspect]
     Active Substance: PREGABALIN
     Indication: FIBROMYALGIA
     Dosage: 200 MG, 2X/DAY (200MG CAPSULE, 1 CAPSULE BY MOUTH TWICE A DAY; MORNING AND NIGHT)
     Route: 048

REACTIONS (6)
  - Pain [Unknown]
  - Dyspnoea [Unknown]
  - Nervousness [Unknown]
  - Upper respiratory tract infection [Recovering/Resolving]
  - Pyrexia [Unknown]
  - Influenza [Unknown]
